FAERS Safety Report 8904547 (Version 3)
Quarter: 2013Q1

REPORT INFORMATION
  Report Type: Spontaneous
  Country: US (occurrence: US)
  Receive Date: 20121110
  Receipt Date: 20130227
  Transmission Date: 20140127
  Serious: No
  Sender: FDA-Public Use
  Company Number: US-009507513-1211USA004185

PATIENT
  Sex: Male

DRUGS (3)
  1. PEGINTRON [Suspect]
     Indication: HEPATITIS C
     Dosage: 150 MICROGRAM, QW
     Route: 058
     Dates: start: 20121022, end: 20121106
  2. RIBASPHERE [Suspect]
     Indication: HEPATITIS
     Dosage: UNK
     Dates: start: 20121022, end: 20121106
  3. NADOLOL [Concomitant]
     Dosage: 20 MG, UNK

REACTIONS (15)
  - Splenomegaly [Unknown]
  - Malaise [Recovered/Resolved]
  - Vomiting [Recovered/Resolved]
  - Nausea [Recovered/Resolved]
  - Anaemia [Unknown]
  - Diverticulum [Unknown]
  - Erectile dysfunction [Unknown]
  - Varices oesophageal [Unknown]
  - Hyperglycaemia [Unknown]
  - Haemorrhoids [Unknown]
  - Iron deficiency anaemia [Unknown]
  - Arthralgia [Unknown]
  - Back pain [Unknown]
  - Skin mass [Unknown]
  - Liver disorder [Unknown]
